FAERS Safety Report 23396511 (Version 2)
Quarter: 2024Q1

REPORT INFORMATION
  Report Type: Spontaneous
  Country: SE (occurrence: SE)
  Receive Date: 20240112
  Receipt Date: 20240229
  Transmission Date: 20240410
  Serious: Yes (Death, Hospitalization)
  Sender: FDA-Public Use
  Company Number: None

PATIENT
  Age: 53 Year
  Sex: Female
  Weight: 64 kg

DRUGS (19)
  1. TECENTRIQ [Suspect]
     Active Substance: ATEZOLIZUMAB
     Indication: Small cell lung cancer
     Route: 065
     Dates: start: 20230628, end: 20230628
  2. TECENTRIQ [Suspect]
     Active Substance: ATEZOLIZUMAB
     Route: 065
     Dates: start: 20230607, end: 20230607
  3. TECENTRIQ [Suspect]
     Active Substance: ATEZOLIZUMAB
     Route: 065
     Dates: start: 20230424, end: 20230424
  4. TECENTRIQ [Suspect]
     Active Substance: ATEZOLIZUMAB
     Route: 065
     Dates: start: 20230516, end: 20230516
  5. TECENTRIQ [Suspect]
     Active Substance: ATEZOLIZUMAB
     Route: 065
     Dates: start: 20231010, end: 20231010
  6. TECENTRIQ [Suspect]
     Active Substance: ATEZOLIZUMAB
     Route: 065
     Dates: start: 20230719, end: 20230719
  7. TECENTRIQ [Suspect]
     Active Substance: ATEZOLIZUMAB
     Route: 065
     Dates: start: 20230315, end: 20230315
  8. TECENTRIQ [Suspect]
     Active Substance: ATEZOLIZUMAB
     Route: 065
     Dates: start: 20230315, end: 20231206
  9. TECENTRIQ [Suspect]
     Active Substance: ATEZOLIZUMAB
     Route: 065
     Dates: start: 20230919, end: 20230919
  10. CALCIUM CHLORIDE\POTASSIUM CHLORIDE\SODIUM ACETATE [Concomitant]
     Active Substance: CALCIUM CHLORIDE\POTASSIUM CHLORIDE\SODIUM ACETATE
     Dosage: 1000 ML
     Dates: start: 20231127
  11. BISOPROLOL [Concomitant]
     Active Substance: BISOPROLOL\BISOPROLOL FUMARATE
     Dates: start: 20231203
  12. ENOXAPARIN [Concomitant]
     Active Substance: ENOXAPARIN
     Dates: start: 20231129
  13. TAMBOCOR [Concomitant]
     Active Substance: FLECAINIDE ACETATE
     Dates: start: 20230828
  14. BETAMETHASONE [Concomitant]
     Active Substance: BETAMETHASONE\BETAMETHASONE DIPROPIONATE
     Dates: start: 20230829
  15. PRIMPERAN [Concomitant]
     Active Substance: METOCLOPRAMIDE HYDROCHLORIDE
     Dates: start: 20230906
  16. ONDANSETRON [Concomitant]
     Active Substance: ONDANSETRON
     Dates: start: 20230829
  17. ZOLEDRONIC ACID [Concomitant]
     Active Substance: ZOLEDRONIC ACID
     Dosage: DOSERING ENLIGT ANVISNING
     Dates: start: 20231010
  18. SODIUM CHLORIDE [Concomitant]
     Active Substance: SODIUM CHLORIDE
     Dates: start: 20231208
  19. CALCIUM CARBONATE\CHOLECALCIFEROL [Concomitant]
     Active Substance: CALCIUM CARBONATE\CHOLECALCIFEROL
     Dates: start: 20230424

REACTIONS (7)
  - Hypoaesthesia [Fatal]
  - Muscular weakness [Fatal]
  - Guillain-Barre syndrome [Fatal]
  - Pneumonia [Fatal]
  - Dyspnoea [Fatal]
  - Cardiomegaly [Fatal]
  - Papillary muscle infarction [Fatal]

NARRATIVE: CASE EVENT DATE: 20231124
